FAERS Safety Report 12376341 (Version 1)
Quarter: 2016Q2

REPORT INFORMATION
  Report Type: Spontaneous
  Country: US (occurrence: US)
  Receive Date: 20160517
  Receipt Date: 20160517
  Transmission Date: 20160815
  Serious: Yes (Hospitalization, Other)
  Sender: FDA-Public Use
  Company Number: US-PFIZER INC-2016251495

PATIENT
  Age: 54 Year
  Sex: Male
  Weight: 82.55 kg

DRUGS (4)
  1. TIKOSYN [Suspect]
     Active Substance: DOFETILIDE
     Dosage: 500 MCG TWICE A DAY
     Route: 048
     Dates: start: 20160401
  2. METOPROLOL. [Suspect]
     Active Substance: METOPROLOL
     Indication: HEART RATE INCREASED
     Dosage: 12.5 MG TWICE A DAY
     Route: 048
     Dates: start: 20160301
  3. TIKOSYN [Suspect]
     Active Substance: DOFETILIDE
     Indication: ATRIAL FIBRILLATION
     Dosage: 250 MCG TWICE A DAY
     Route: 048
     Dates: start: 20160301
  4. METOPROLOL. [Suspect]
     Active Substance: METOPROLOL
     Dosage: 25 MG TWICE A DAY
     Route: 048
     Dates: start: 20160401

REACTIONS (11)
  - Dyspnoea [Not Recovered/Not Resolved]
  - Asthenia [Not Recovered/Not Resolved]
  - Chills [Not Recovered/Not Resolved]
  - Hypersomnia [Not Recovered/Not Resolved]
  - Pallor [Not Recovered/Not Resolved]
  - Atrial fibrillation [Not Recovered/Not Resolved]
  - Cough [Not Recovered/Not Resolved]
  - Arrhythmia [Not Recovered/Not Resolved]
  - Nasopharyngitis [Not Recovered/Not Resolved]
  - Decreased appetite [Not Recovered/Not Resolved]
  - Tachycardia [Not Recovered/Not Resolved]

NARRATIVE: CASE EVENT DATE: 201603
